FAERS Safety Report 24585568 (Version 12)
Quarter: 2025Q3

REPORT INFORMATION
  Report Type: Report from Study
  Country: US (occurrence: US)
  Receive Date: 20241106
  Receipt Date: 20250825
  Transmission Date: 20251020
  Serious: No
  Sender: SUNOVION
  Company Number: US-SUMITOMO PHARMA SWITZERLAND GMBH-2024SPA004581

PATIENT
  Age: 71 Year
  Sex: Male

DRUGS (22)
  1. ORGOVYX [Suspect]
     Active Substance: RELUGOLIX
     Indication: Prostate cancer
     Dosage: 360 MG, SINGLE
     Route: 048
     Dates: start: 20241023, end: 20241023
  2. ORGOVYX [Suspect]
     Active Substance: RELUGOLIX
     Dosage: 120 MG, QD
     Route: 048
     Dates: start: 20241024
  3. GEMTESA [Suspect]
     Active Substance: VIBEGRON
     Indication: Product used for unknown indication
  4. SOY ISOFLAVONES [Suspect]
     Active Substance: SOY ISOFLAVONES
     Indication: Product used for unknown indication
  5. ATORVASTATIN [Concomitant]
     Active Substance: ATORVASTATIN
  6. COLACE [Concomitant]
     Active Substance: DOCUSATE SODIUM
  7. LEVOTHYROXINE [Concomitant]
     Active Substance: LEVOTHYROXINE
  8. VITAMINS [Concomitant]
     Active Substance: VITAMINS
  9. TELMISARTAN [Concomitant]
     Active Substance: TELMISARTAN
  10. HYDROCHLOROTHIAZIDE [Concomitant]
     Active Substance: HYDROCHLOROTHIAZIDE
  11. FOSFOMYCIN TROMETHAMINE [Concomitant]
     Active Substance: FOSFOMYCIN TROMETHAMINE
  12. CHOLESTYRAMINE [Concomitant]
     Active Substance: CHOLESTYRAMINE
     Route: 048
  13. VITAMINS [Concomitant]
     Active Substance: VITAMINS
  14. 4-way Saline [Concomitant]
  15. Maalox multi symptom [Concomitant]
  16. Max [Concomitant]
  17. TYLENOL EXTRA STRENGTH [Concomitant]
     Active Substance: ACETAMINOPHEN
  18. FAMOTIDINE [Concomitant]
     Active Substance: FAMOTIDINE
  19. LACTULOSE [Concomitant]
     Active Substance: LACTULOSE
  20. HIGH DENSITY POLYETHYLENE [Concomitant]
     Active Substance: HIGH DENSITY POLYETHYLENE
  21. MINERALS [Concomitant]
     Active Substance: MINERALS
  22. SUCRALFATE [Concomitant]
     Active Substance: SUCRALFATE

REACTIONS (22)
  - Pain [Unknown]
  - Tooth infection [Unknown]
  - Pruritus [Unknown]
  - Dry skin [Unknown]
  - Micturition urgency [Unknown]
  - Pollakiuria [Unknown]
  - Pain in jaw [Unknown]
  - Feeling abnormal [Unknown]
  - Frequent bowel movements [Not Recovered/Not Resolved]
  - Dry mouth [Unknown]
  - Somnolence [Unknown]
  - Mood altered [Unknown]
  - Headache [Unknown]
  - Dizziness [Unknown]
  - Abdominal discomfort [Unknown]
  - Rash [Unknown]
  - Asthenia [Recovered/Resolved]
  - Diarrhoea [Unknown]
  - Arthralgia [Not Recovered/Not Resolved]
  - Fatigue [Unknown]
  - Myalgia [Unknown]
  - Constipation [Unknown]

NARRATIVE: CASE EVENT DATE: 20241023
